FAERS Safety Report 6495923-6 (Version None)
Quarter: 2009Q4

REPORT INFORMATION
  Report Type: 
  Country: None (occurrence: None)
  Receive Date: 20091214
  Receipt Date: 20090827
  Transmission Date: 20100525
  Serious: Yes (Other)
  Sender: FDA-Public Use
  Company Number: US-BRISTOL-MYERS SQUIBB COMPANY-14757397

PATIENT
  Age: 3 Decade
  Sex: Female

DRUGS (3)
  1. ABILIFY [Suspect]
     Indication: MAJOR DEPRESSION
     Dosage: STARTING DOSE=2 TO 2.5MG 1 OR 2 WEEKS, INCREASED TO 5MG, AND THEN TO 10MG.
     Route: 048
  2. ELAVIL [Concomitant]
  3. CYMBALTA [Concomitant]

REACTIONS (1)
  - WEIGHT INCREASED [None]
